FAERS Safety Report 24239049 (Version 1)
Quarter: 2024Q3

REPORT INFORMATION
  Report Type: Spontaneous
  Country: US (occurrence: None)
  Receive Date: 20240822
  Receipt Date: 20240822
  Transmission Date: 20241017
  Serious: Yes (Hospitalization)
  Sender: Public
  Company Number: None

PATIENT
  Age: 64 Year
  Sex: Female
  Weight: 74.4 kg

DRUGS (2)
  1. CARBOPLATIN [Suspect]
     Active Substance: CARBOPLATIN
     Dates: start: 20240206, end: 20240409
  2. GEMCITABINE HYDROCHLORIDE [Concomitant]
     Active Substance: GEMCITABINE HYDROCHLORIDE

REACTIONS (45)
  - Cardiac failure congestive [None]
  - Hyponatraemia [None]
  - Osteonecrosis [None]
  - Anaemia [None]
  - Hypoalbuminaemia [None]
  - Lower gastrointestinal haemorrhage [None]
  - Pain in extremity [None]
  - Peripheral ischaemia [None]
  - Neuropathy peripheral [None]
  - Sepsis [None]
  - Wound infection [None]
  - Gait inability [None]
  - Peripheral artery occlusion [None]
  - Iliac artery occlusion [None]
  - Skin ulcer [None]
  - Coagulopathy [None]
  - Pain in extremity [None]
  - Blister [None]
  - Cellulitis [None]
  - Wound infection staphylococcal [None]
  - Staphylococcal infection [None]
  - Cerebrovascular accident [None]
  - Disorientation [None]
  - Dysarthria [None]
  - Delirium [None]
  - Anaesthetic complication [None]
  - Loss of control of legs [None]
  - Enterococcal infection [None]
  - Culture wound positive [None]
  - Blister [None]
  - Wound secretion [None]
  - Peripheral ischaemia [None]
  - Enterobacter infection [None]
  - Gangrene [None]
  - Haemoglobin decreased [None]
  - Mental status changes [None]
  - Haematochezia [None]
  - Gastrointestinal haemorrhage [None]
  - Transfusion [None]
  - Large intestinal ulcer [None]
  - Leg amputation [None]
  - Product availability issue [None]
  - Drug resistance [None]
  - Limb injury [None]
  - Wound [None]

NARRATIVE: CASE EVENT DATE: 20240414
